FAERS Safety Report 7828066-7 (Version None)
Quarter: 2011Q4

REPORT INFORMATION
  Report Type: 
  Country: None (occurrence: None)
  Receive Date: 20111020
  Receipt Date: 20110210
  Transmission Date: 20120403
  Serious: Yes (Other)
  Sender: FDA-Public Use
  Company Number: RU-GLAXOSMITHKLINE-B0756734A

PATIENT

DRUGS (1)
  1. PROPAFENONE HCL [Suspect]
     Indication: ARRHYTHMIA PROPHYLAXIS
     Dosage: 66MGK PER DAY
     Route: 048

REACTIONS (2)
  - CARDIOVASCULAR INSUFFICIENCY [None]
  - ATRIAL FIBRILLATION [None]
